FAERS Safety Report 6143075-4 (Version None)
Quarter: 2009Q2

REPORT INFORMATION
  Report Type: 
  Country: None (occurrence: None)
  Receive Date: 20090403
  Receipt Date: 20090324
  Transmission Date: 20091009
  Serious: Yes (Hospitalization)
  Sender: FDA-Public Use
  Company Number: FR-SANOFI-SYNTHELABO-A02200900795

PATIENT
  Sex: Male
  Weight: 80 kg

DRUGS (7)
  1. STROMECTOL [Concomitant]
     Indication: DRUG USE FOR UNKNOWN INDICATION
     Route: 048
     Dates: start: 20090218, end: 20090218
  2. CORTANCYL [Concomitant]
     Indication: HENOCH-SCHONLEIN PURPURA
     Dosage: 40 MG
     Route: 048
     Dates: start: 20090204, end: 20090312
  3. CORTANCYL [Concomitant]
     Dosage: 80 MG
     Route: 048
     Dates: start: 20090213
  4. AMLODIPINE BESYLATE [Suspect]
     Indication: DEATH
     Dosage: 5 THEN 10 MG
     Route: 048
     Dates: start: 20090217, end: 20090225
  5. INIPOMP [Suspect]
     Indication: ABDOMINAL PAIN UPPER
     Route: 042
     Dates: start: 20090219, end: 20090224
  6. MOPRAL [Suspect]
     Indication: DRUG USE FOR UNKNOWN INDICATION
     Route: 048
     Dates: start: 20090204, end: 20090218
  7. ZOLPIDEM [Suspect]
     Indication: DRUG USE FOR UNKNOWN INDICATION
     Route: 048
     Dates: start: 20090204, end: 20090224

REACTIONS (3)
  - BLOOD CREATINE PHOSPHOKINASE INCREASED [None]
  - HEPATOCELLULAR INJURY [None]
  - MYALGIA [None]
